FAERS Safety Report 8808767 (Version 1)
Quarter: 2012Q4

REPORT INFORMATION
  Report Type: 
  Country: BR (occurrence: BR)
  Receive Date: 20120926
  Receipt Date: 20120926
  Transmission Date: 20130627
  Serious: Yes (Hospitalization)
  Sender: FDA-Public Use
  Company Number: BR-JNJFOC-20120910715

PATIENT
  Age: 55 Year
  Sex: Female
  Weight: 63 kg

DRUGS (2)
  1. XARELTO [Suspect]
     Indication: THROMBOSIS PROPHYLAXIS
     Route: 048
     Dates: start: 20120902, end: 20120910
  2. XARELTO [Suspect]
     Indication: KNEE OPERATION
     Route: 048
     Dates: start: 20120902, end: 20120910

REACTIONS (1)
  - Thrombosis [Not Recovered/Not Resolved]
